FAERS Safety Report 5383538-2 (Version None)
Quarter: 2007Q3

REPORT INFORMATION
  Report Type: 
  Country: None (occurrence: None)
  Receive Date: 20070706
  Receipt Date: 20070626
  Transmission Date: 20080115
  Serious: Yes (Hospitalization)
  Sender: FDA-Public Use
  Company Number: 2007SP009191

PATIENT
  Age: 54 Year
  Sex: Female

DRUGS (5)
  1. VIRAFERONPEG [Suspect]
     Indication: HEPATITIS C
     Dosage: SEE IMAGE
     Route: 058
     Dates: start: 20060615, end: 20060928
  2. VIRAFERONPEG [Suspect]
     Indication: HEPATITIS C
     Dosage: SEE IMAGE
     Route: 058
     Dates: start: 20061116
  3. REBETOL [Suspect]
     Indication: HEPATITIS C
     Dosage: PO
     Route: 048
     Dates: start: 20060615, end: 20060908
  4. EPREX [Concomitant]
  5. ANTIRETROVIRAL TREATMENT [Concomitant]

REACTIONS (4)
  - ANAEMIA [None]
  - CUTANEOUS VASCULITIS [None]
  - NEUTROPENIA [None]
  - POLYARTHRITIS [None]
